FAERS Safety Report 21493443 (Version 2)
Quarter: 2022Q4

REPORT INFORMATION
  Report Type: Spontaneous
  Country: JP (occurrence: JP)
  Receive Date: 20221021
  Receipt Date: 20221103
  Transmission Date: 20230113
  Serious: Yes (Hospitalization, Other)
  Sender: FDA-Public Use
  Company Number: JP-BAXTER-2022BAX022182

PATIENT
  Age: 51 Year
  Sex: Male

DRUGS (13)
  1. CYCLOPHOSPHAMIDE [Suspect]
     Active Substance: CYCLOPHOSPHAMIDE
     Indication: Thymoma malignant recurrent
     Dosage: UNK
     Route: 065
     Dates: start: 2012, end: 201503
  2. CYCLOPHOSPHAMIDE [Suspect]
     Active Substance: CYCLOPHOSPHAMIDE
     Dosage: UNK
     Route: 065
     Dates: start: 201901, end: 201912
  3. CYCLOPHOSPHAMIDE [Suspect]
     Active Substance: CYCLOPHOSPHAMIDE
     Dosage: UNK
     Route: 065
     Dates: start: 202104
  4. DOXORUBICIN [Suspect]
     Active Substance: DOXORUBICIN
     Indication: Thymoma malignant recurrent
     Dosage: UNK
     Route: 065
     Dates: start: 2012, end: 201503
  5. DOXORUBICIN [Suspect]
     Active Substance: DOXORUBICIN
     Dosage: UNK
     Route: 065
     Dates: start: 201901, end: 201912
  6. DOXORUBICIN [Suspect]
     Active Substance: DOXORUBICIN
     Dosage: UNK
     Route: 065
     Dates: start: 202104
  7. CISPLATIN [Suspect]
     Active Substance: CISPLATIN
     Indication: Thymoma malignant recurrent
     Dosage: UNK
     Route: 065
     Dates: start: 2012, end: 201503
  8. CISPLATIN [Suspect]
     Active Substance: CISPLATIN
     Dosage: UNK
     Route: 065
     Dates: start: 201901, end: 201912
  9. CISPLATIN [Suspect]
     Active Substance: CISPLATIN
     Dosage: UNK
     Route: 065
     Dates: start: 202104
  10. VINCRISTINE SULFATE [Suspect]
     Active Substance: VINCRISTINE SULFATE
     Indication: Thymoma malignant recurrent
     Dosage: UNK
     Route: 065
     Dates: start: 2012, end: 201503
  11. VINCRISTINE SULFATE [Suspect]
     Active Substance: VINCRISTINE SULFATE
     Dosage: UNK
     Route: 065
     Dates: start: 201901, end: 201912
  12. VINCRISTINE SULFATE [Suspect]
     Active Substance: VINCRISTINE SULFATE
     Dosage: UNK
     Route: 065
     Dates: start: 202104
  13. PREDNISOLONE [Concomitant]
     Active Substance: PREDNISOLONE
     Indication: Myasthenia gravis
     Dosage: 4 MG/DAY
     Route: 048

REACTIONS (9)
  - Morvan syndrome [Recovering/Resolving]
  - Syncope [Recovering/Resolving]
  - Dyskinesia [Recovering/Resolving]
  - Myokymia [Recovering/Resolving]
  - Memory impairment [Recovering/Resolving]
  - Parasomnia [Recovering/Resolving]
  - Orthostatic hypotension [Recovering/Resolving]
  - Autonomic nervous system imbalance [Recovering/Resolving]
  - Disease recurrence [Recovering/Resolving]

NARRATIVE: CASE EVENT DATE: 20190101
